FAERS Safety Report 9555056 (Version 1)
Quarter: 2013Q3

REPORT INFORMATION
  Report Type: Spontaneous
  Country: BR (occurrence: BR)
  Receive Date: 20130926
  Receipt Date: 20130926
  Transmission Date: 20140515
  Serious: Yes (Other)
  Sender: FDA-Public Use
  Company Number: BR-AMGEN-BRASP2013067724

PATIENT
  Age: 28 Year
  Sex: Male
  Weight: 88 kg

DRUGS (3)
  1. ENBREL [Suspect]
     Indication: ANKYLOSING SPONDYLITIS
     Dosage: 50 MG, EVERY 15 DAYS
     Route: 058
     Dates: end: 201306
  2. BUTAZONE [Concomitant]
     Indication: PAIN
     Dosage: UNK, AS NEEDED
  3. COLCHIS [Concomitant]
     Indication: SPONDYLITIS
     Dosage: STRENGTH 30MG

REACTIONS (2)
  - Immunodeficiency [Unknown]
  - Tuberculin test positive [Unknown]
